FAERS Safety Report 25339778 (Version 1)
Quarter: 2025Q2

REPORT INFORMATION
  Report Type: Spontaneous
  Country: GB (occurrence: GB)
  Receive Date: 20250521
  Receipt Date: 20250521
  Transmission Date: 20250717
  Serious: Yes (Other)
  Sender: SANDOZ
  Company Number: None

PATIENT
  Age: 54 Year
  Sex: Female

DRUGS (1)
  1. TYRUKO [Suspect]
     Active Substance: NATALIZUMAB-SZTN
     Indication: Multiple sclerosis
     Route: 065
     Dates: start: 20240521, end: 20240820

REACTIONS (6)
  - Abdominal distension [Not Recovered/Not Resolved]
  - Dysphagia [Recovered/Resolved]
  - Vaginal discharge [Recovered/Resolved]
  - Pollakiuria [Recovered/Resolved with Sequelae]
  - Nausea [Recovered/Resolved]
  - Headache [Recovered/Resolved]

NARRATIVE: CASE EVENT DATE: 20240521
